FAERS Safety Report 8320122-2 (Version None)
Quarter: 2012Q2

REPORT INFORMATION
  Report Type: 
  Country: None (occurrence: None)
  Receive Date: 20120430
  Receipt Date: 20120416
  Transmission Date: 20120825
  Serious: Yes (Death, Hospitalization)
  Sender: FDA-Public Use
  Company Number: TN-BRISTOL-MYERS SQUIBB COMPANY-16524118

PATIENT
  Age: 32 Year
  Sex: Male

DRUGS (5)
  1. ETOPOSIDE [Suspect]
     Indication: T-CELL LYMPHOMA
  2. BLEOMYCIN SULFATE [Suspect]
     Indication: T-CELL LYMPHOMA
  3. DOXORUBICIN HCL [Suspect]
     Indication: T-CELL LYMPHOMA
  4. CYCLOPHOSPHAMIDE [Suspect]
     Indication: T-CELL LYMPHOMA
  5. PREDNISONE [Suspect]
     Indication: T-CELL LYMPHOMA

REACTIONS (3)
  - ASPERGILLOSIS [None]
  - NEUTROPENIA [None]
  - BACTERIAL SEPSIS [None]
